FAERS Safety Report 4641629-5 (Version None)
Quarter: 2005Q2

REPORT INFORMATION
  Report Type: 
  Country: None (occurrence: None)
  Receive Date: 20050420
  Receipt Date: 20050407
  Transmission Date: 20051028
  Serious: Yes (Hospitalization, Other)
  Sender: FDA-Public Use
  Company Number: 2005-DE-01336GD

PATIENT
  Age: 5 Month
  Sex: 0

DRUGS (3)
  1. MEXILETINE (MEXILETINE HYDROCHLORIDE) [Suspect]
     Indication: DISEASE RECURRENCE
     Dosage: 72 MG (24 MG, THREE TIMES DAILY)
     Route: 048
  2. MEXILETINE (MEXILETINE HYDROCHLORIDE) [Suspect]
     Indication: PROPHYLAXIS
     Dosage: 72 MG (24 MG, THREE TIMES DAILY)
     Route: 048
  3. MEXILETINE (MEXILETINE HYDROCHLORIDE) [Suspect]
     Indication: VENTRICULAR ARRHYTHMIA
     Dosage: 72 MG (24 MG, THREE TIMES DAILY)
     Route: 048

REACTIONS (5)
  - CARDIO-RESPIRATORY ARREST NEONATAL [None]
  - CONDITION AGGRAVATED [None]
  - DRUG INEFFECTIVE [None]
  - TORSADE DE POINTES [None]
  - VENTRICULAR ARRHYTHMIA [None]
